FAERS Safety Report 4280725-1 (Version None)
Quarter: 2004Q1

REPORT INFORMATION
  Report Type: 
  Country: None (occurrence: None)
  Receive Date: 20040129
  Receipt Date: 20031103
  Transmission Date: 20041129
  Serious: No
  Sender: FDA-Public Use
  Company Number: US-BRISTOL-MYERS SQUIBB COMPANY-12424958

PATIENT
  Sex: Female

DRUGS (10)
  1. METAGLIP [Suspect]
     Indication: DIABETES MELLITUS
     Dosage: DOSAGE FORM = TABLET (2.5MG/250MG)
     Route: 048
     Dates: start: 20031101, end: 20031101
  2. SULAR [Concomitant]
  3. METOPROLOL [Concomitant]
  4. ISOSORBIDE [Concomitant]
  5. LIPITOR [Concomitant]
  6. COUMADIN [Concomitant]
  7. ASPIRIN [Concomitant]
  8. CIPRO [Concomitant]
     Indication: URINARY TRACT INFECTION
  9. COZAAR [Concomitant]
  10. LASIX [Concomitant]

REACTIONS (1)
  - HYPOGLYCAEMIA [None]
